FAERS Safety Report 9747704 (Version 1)
Quarter: 2013Q4

REPORT INFORMATION
  Report Type: Spontaneous
  Country: US (occurrence: None)
  Receive Date: 20131206
  Receipt Date: 20131206
  Transmission Date: 20140711
  Serious: Yes (Other)
  Sender: FDA-Public Use
  Company Number: 2013US00811

PATIENT
  Sex: Female

DRUGS (4)
  1. CARBOPLATIN [Suspect]
     Indication: BREAST CANCER
     Route: 042
  2. DOCETAXEL [Suspect]
     Indication: BREAST CANCER
     Route: 042
  3. TRASTUZUMAB [Suspect]
     Indication: BREAST CANCER
     Route: 042
  4. BEVACIZUMAB [Suspect]
     Indication: BREAST CANCER
     Dosage: BEGINNING ON DAY 1 FOR A TOTAL ON-TREATMENT PERIOD OF 52 WEEKS FROM FIRST DOS
     Route: 042

REACTIONS (1)
  - Ejection fraction decreased [None]
